FAERS Safety Report 7191593-2 (Version None)
Quarter: 2010Q4

REPORT INFORMATION
  Report Type: 
  Country: None (occurrence: None)
  Receive Date: 20101223
  Receipt Date: 20100817
  Transmission Date: 20110411
  Serious: No
  Sender: FDA-Public Use
  Company Number: US-AMGEN-KDL431998

PATIENT

DRUGS (5)
  1. ENBREL [Suspect]
     Indication: PRODUCT USED FOR UNKNOWN INDICATION
     Dosage: 50 MG, QWK
     Route: 058
  2. ETODOLAC [Concomitant]
     Dosage: 200 MG, UNK
  3. METHOTREXATE [Concomitant]
     Dosage: 2.5 MG, UNK
  4. PREGABALIN [Concomitant]
     Dosage: 100 MG, UNK
  5. CYCLOBENZAPRINE [Concomitant]
     Dosage: 5 MG, UNK

REACTIONS (2)
  - IMPAIRED HEALING [None]
  - INJECTION SITE HAEMATOMA [None]
